FAERS Safety Report 21789393 (Version 1)
Quarter: 2022Q4

REPORT INFORMATION
  Report Type: Report from Study
  Country: US (occurrence: US)
  Receive Date: 20221228
  Receipt Date: 20221228
  Transmission Date: 20230113
  Serious: No
  Sender: FDA-Public Use
  Company Number: US-ABBVIE-4208243

PATIENT
  Sex: Female

DRUGS (1)
  1. HUMIRA [Suspect]
     Active Substance: ADALIMUMAB
     Indication: Product used for unknown indication
     Route: 058

REACTIONS (6)
  - Dermatomyositis [Unknown]
  - Rash [Recovering/Resolving]
  - Blister [Unknown]
  - Pruritus [Unknown]
  - Macule [Unknown]
  - Skin plaque [Unknown]
